FAERS Safety Report 12930611 (Version 1)
Quarter: 2016Q4

REPORT INFORMATION
  Report Type: Spontaneous
  Country: US (occurrence: US)
  Receive Date: 20161111
  Receipt Date: 20161111
  Transmission Date: 20170207
  Serious: Yes (Other)
  Sender: FDA-Public Use
  Company Number: None

PATIENT
  Age: 70 Year
  Sex: Male
  Weight: 103.5 kg

DRUGS (1)
  1. PRALUENT [Suspect]
     Active Substance: ALIROCUMAB
     Indication: HYPERLIPIDAEMIA
     Dosage: ?          OTHER FREQUENCY:EVERY 2 WEEKS;?
     Route: 058
     Dates: start: 20160712, end: 20161004

REACTIONS (6)
  - Pain [None]
  - Hypersomnia [None]
  - Myalgia [None]
  - Dysstasia [None]
  - Arthralgia [None]
  - Feeling abnormal [None]

NARRATIVE: CASE EVENT DATE: 20160908
